FAERS Safety Report 4896799-0 (Version None)
Quarter: 2006Q1

REPORT INFORMATION
  Report Type: 
  Country: None (occurrence: None)
  Receive Date: 20060126
  Receipt Date: 20060117
  Transmission Date: 20060701
  Serious: Yes (Hospitalization)
  Sender: FDA-Public Use
  Company Number: CIP06000085

PATIENT
  Age: 29 Year
  Sex: Male

DRUGS (1)
  1. ASACOL [Suspect]
     Indication: CROHN'S DISEASE
     Dosage: 3000 MG DAILY, ORAL
     Route: 048
     Dates: start: 20021016

REACTIONS (6)
  - ABDOMINAL PAIN [None]
  - ATELECTASIS [None]
  - BRONCHIOLITIS [None]
  - CRYPTOGENIC ORGANIZING PNEUMONIA [None]
  - DIARRHOEA HAEMORRHAGIC [None]
  - PLEURITIC PAIN [None]
